FAERS Safety Report 14546830 (Version 6)
Quarter: 2018Q4

REPORT INFORMATION
  Report Type: Spontaneous
  Country: US (occurrence: US)
  Receive Date: 20180219
  Receipt Date: 20181129
  Transmission Date: 20190204
  Serious: Yes (Other)
  Sender: FDA-Public Use
  Company Number: US-PFIZER INC-2018003629

PATIENT
  Age: 78 Year
  Sex: Male
  Weight: 73 kg

DRUGS (13)
  1. LYRICA [Suspect]
     Active Substance: PREGABALIN
     Dosage: 100 MG, 2X/DAY
     Route: 048
     Dates: start: 2017
  2. ASPIRIN. [Concomitant]
     Active Substance: ASPIRIN
     Indication: CARDIAC DISORDER
     Dosage: UNK
  3. LYRICA [Suspect]
     Active Substance: PREGABALIN
     Dosage: 400 MG, 2X/DAY (LYRICA CAPSULE 200 MG ORALLY - 2 CAPSULES TWICE A DAY)
     Route: 048
  4. LYRICA [Suspect]
     Active Substance: PREGABALIN
     Dosage: 800 MG, DAILY [200MG 4 PILLS A DAY]
     Dates: start: 201805, end: 2018
  5. LYRICA [Suspect]
     Active Substance: PREGABALIN
     Indication: PAIN
     Dosage: 150 MG, 2X/DAY (IN THE MORNING AND AT NIGHT)
     Route: 048
  6. LYRICA [Suspect]
     Active Substance: PREGABALIN
     Indication: BURNING SENSATION
     Dosage: 300 MG, TWICE DAILY (ONE 300 MG CAPSULE, TWICE DAILY)
     Route: 048
  7. LYRICA [Suspect]
     Active Substance: PREGABALIN
     Indication: NEUROPATHY PERIPHERAL
     Dosage: 50 MG, 2X/DAY (IN THE MORNING AND ONCE IN THE EVENING)
  8. LYRICA [Suspect]
     Active Substance: PREGABALIN
     Dosage: 3 DF, 1X/DAY (3 CAPSULES AT NIGHT)
     Dates: start: 201701
  9. LYRICA [Suspect]
     Active Substance: PREGABALIN
     Dosage: 400 MG, DAILY
  10. LYRICA [Suspect]
     Active Substance: PREGABALIN
     Dosage: 75 MG, TWICE A DAY
  11. LYRICA [Suspect]
     Active Substance: PREGABALIN
     Dosage: 200 MG, 2X/DAY (TWO 100 MG CAPSULES TWICE A DAY)
     Route: 048
  12. DIGOXIN. [Concomitant]
     Active Substance: DIGOXIN
     Indication: CARDIAC DISORDER
     Dosage: UNK
     Dates: start: 201802
  13. LYRICA [Suspect]
     Active Substance: PREGABALIN
     Dosage: 75 MG, 1X/DAY (75 MG TABLET IN THE MORNING)
     Dates: start: 20180607

REACTIONS (8)
  - Overdose [Unknown]
  - Constipation [Unknown]
  - Blindness [Unknown]
  - Drug ineffective [Unknown]
  - Abdominal discomfort [Unknown]
  - Intentional product misuse [Unknown]
  - Pain in extremity [Unknown]
  - Burning sensation [Unknown]

NARRATIVE: CASE EVENT DATE: 201701
